FAERS Safety Report 9430231 (Version 1)
Quarter: 2013Q3

REPORT INFORMATION
  Report Type: Spontaneous
  Country: US (occurrence: US)
  Receive Date: 20130730
  Receipt Date: 20130730
  Transmission Date: 20140515
  Serious: Yes (Other)
  Sender: FDA-Public Use
  Company Number: US-TEVA-421533USA

PATIENT
  Sex: Female

DRUGS (1)
  1. NORTREL [Suspect]
     Dosage: 1.0 MG/0.035 MG

REACTIONS (2)
  - Coeliac disease [Unknown]
  - Nausea [Unknown]
